FAERS Safety Report 8215080-5 (Version None)
Quarter: 2012Q1

REPORT INFORMATION
  Report Type: 
  Country: None (occurrence: None)
  Receive Date: 20120314
  Receipt Date: 20120302
  Transmission Date: 20120608
  Serious: Yes (Hospitalization, Other)
  Sender: FDA-Public Use
  Company Number: AUR-APL-2012-00907

PATIENT
  Age: 50 Year
  Sex: Male
  Weight: 109 kg

DRUGS (7)
  1. WELLBUTRIN [Suspect]
     Indication: DEPRESSION
     Dosage: (100 MG,1 D)
     Dates: start: 20070101
  2. AMLODIPINE [Suspect]
     Indication: HYPERTENSION
     Dosage: (5 MG,1 D)
     Dates: start: 20070101
  3. CITALOPRAM HYDROBROMIDE [Suspect]
     Indication: ANXIETY
     Dosage: (10 MG,1 D)
     Dates: start: 20070101
  4. HYDROCHLOROTHIAZIDE [Suspect]
     Indication: HYPERTENSION
     Dosage: (25 MG,1 D)
     Dates: start: 20070101
  5. AMBIEN [Suspect]
     Indication: SLEEP DISORDER
     Dosage: (10 MG,1 D)
     Dates: start: 20070101
  6. NEURONTIN [Suspect]
     Indication: NERVOUS SYSTEM DISORDER
     Dosage: 900 MG (300 MG,3 IN 1 D)
     Dates: start: 20070101
  7. TENORMIN [Suspect]
     Indication: HYPERTENSION
     Dosage: 100 MG (50 MG,2 IN 1 D)
     Dates: start: 20070101

REACTIONS (5)
  - ECONOMIC PROBLEM [None]
  - INTERVERTEBRAL DISC PROTRUSION [None]
  - NERVE COMPRESSION [None]
  - EXOSTOSIS [None]
  - MALE SEXUAL DYSFUNCTION [None]
